FAERS Safety Report 5012115-8 (Version None)
Quarter: 2006Q2

REPORT INFORMATION
  Report Type: 
  Country: None (occurrence: None)
  Receive Date: 20060525
  Receipt Date: 20060525
  Transmission Date: 20061013
  Serious: Yes (Hospitalization)
  Sender: FDA-Public Use
  Company Number: None

PATIENT
  Sex: Male
  Weight: 75 kg

DRUGS (5)
  1. CARBAMAZEPINE [Suspect]
     Indication: ABNORMAL BEHAVIOUR
     Dosage: 600 MG TID PO
     Route: 048
     Dates: start: 20020109, end: 20060519
  2. OLANZAPINE [Concomitant]
  3. THIORIDAZINE HCL [Concomitant]
  4. CHLOROPHYLL [Concomitant]
  5. MULTIVITAMIN WITH MINERALS [Concomitant]

REACTIONS (2)
  - DRUG LEVEL INCREASED [None]
  - FALL [None]
